FAERS Safety Report 7730520-3 (Version None)
Quarter: 2011Q3

REPORT INFORMATION
  Report Type: 
  Country: None (occurrence: None)
  Receive Date: 20110906
  Receipt Date: 20110825
  Transmission Date: 20111222
  Serious: Yes (Hospitalization)
  Sender: FDA-Public Use
  Company Number: GB-GLAXOSMITHKLINE-A0943255A

PATIENT
  Sex: Female

DRUGS (2)
  1. NONE [Concomitant]
  2. NICORETTE [Suspect]
     Indication: PRODUCT USED FOR UNKNOWN INDICATION
     Route: 002

REACTIONS (2)
  - INTESTINAL RESECTION [None]
  - INTENTIONAL DRUG MISUSE [None]
